FAERS Safety Report 8393766 (Version 5)
Quarter: 2013Q3

REPORT INFORMATION
  Report Type: Spontaneous
  Country: US (occurrence: US)
  Receive Date: 20120207
  Receipt Date: 20130927
  Transmission Date: 20140515
  Serious: Yes (Other)
  Sender: FDA-Public Use
  Company Number: US-ROCHE-1036620

PATIENT
  Age: 44 Year
  Sex: Male
  Weight: 149.82 kg

DRUGS (1)
  1. ACCUTANE [Suspect]
     Indication: ACNE
     Route: 048
     Dates: start: 19821118, end: 1983

REACTIONS (7)
  - Colitis ulcerative [Unknown]
  - Depression [Not Recovered/Not Resolved]
  - Injury [Unknown]
  - Crohn^s disease [Unknown]
  - Inflammatory bowel disease [Unknown]
  - Rectal polyp [Unknown]
  - Irritable bowel syndrome [Unknown]
